FAERS Safety Report 5351918-7 (Version None)
Quarter: 2007Q2

REPORT INFORMATION
  Report Type: 
  Country: None (occurrence: None)
  Receive Date: 20070609
  Receipt Date: 20070530
  Transmission Date: 20071010
  Serious: Yes (Hospitalization)
  Sender: FDA-Public Use
  Company Number: IT-ABBOTT-06P-083-0343079-00

PATIENT
  Sex: Male
  Weight: 64 kg

DRUGS (9)
  1. HUMIRA [Suspect]
     Indication: RHEUMATOID ARTHRITIS
     Dates: start: 20060113, end: 20060728
  2. HUMIRA [Suspect]
     Route: 058
     Dates: start: 20050921, end: 20051215
  3. HUMIRA [Suspect]
     Dates: start: 20060919
  4. METHOTREXATE [Concomitant]
     Indication: RHEUMATOID ARTHRITIS
     Dates: start: 20050303, end: 20060225
  5. METHOTREXATE [Concomitant]
     Dates: start: 20060311, end: 20060722
  6. PREDNISONE TAB [Concomitant]
     Indication: RHEUMATOID ARTHRITIS
     Dates: start: 20050503, end: 20060831
  7. PREDNISONE TAB [Concomitant]
     Dates: start: 20060831, end: 20061218
  8. PREDNISONE TAB [Concomitant]
     Dates: start: 20061218
  9. INDOMETHACIN [Concomitant]
     Indication: RHEUMATOID ARTHRITIS
     Dates: start: 20060801

REACTIONS (3)
  - PHARYNGOLARYNGEAL PAIN [None]
  - PLEURISY [None]
  - PNEUMONIA [None]
